FAERS Safety Report 23030577 (Version 1)
Quarter: 2023Q4

REPORT INFORMATION
  Report Type: Other
  Country: US (occurrence: None)
  Receive Date: 20231005
  Receipt Date: 20231005
  Transmission Date: 20240110
  Serious: Yes (Hospitalization)
  Sender: FDA-Public Use
  Company Number: US-ROCHE-3429334

PATIENT
  Age: 76 Year
  Sex: Female

DRUGS (1)
  1. OCREVUS [Suspect]
     Active Substance: OCRELIZUMAB
     Indication: Multiple sclerosis
     Dosage: INFUSE 300MG INTRAVENOUSLY DAY 1, FOLLOWED BY 300MG INTRAVENOUSLY ON DAY 14, THEN EVERY 6 MONTH(S)DA
     Route: 042
     Dates: start: 20221230, end: 20230120

REACTIONS (2)
  - Sinusitis [Unknown]
  - Urinary tract infection [Unknown]
